FAERS Safety Report 7230504 (Version 3)
Quarter: 2014Q1

REPORT INFORMATION
  Report Type: Spontaneous
  Country: US (occurrence: None)
  Receive Date: 20091208
  Receipt Date: 20140103
  Transmission Date: 20141002
  Serious: Yes (Other)
  Sender: FDA-Public Use
  Company Number: 2009S1008613

PATIENT
  Age: 74 Year
  Sex: Male
  Weight: 80.29 kg

DRUGS (7)
  1. FLEET PHOSPHO-SODA [Suspect]
     Indication: COLONOSCOPY
     Dosage: 2 IN 24 HOURS
     Route: 048
     Dates: start: 20070925, end: 20070925
  2. DULCOLAX (BISACODYL) [Suspect]
     Indication: COLONOSCOPY
     Dosage: TAKE ALL 6 TABLETS
     Route: 048
     Dates: start: 20070925, end: 20070925
  3. PRILOSEC (OMEPRAZOLE) [Concomitant]
  4. LISINOPRIL-HYDROCHLOROTHIAZIDE (HYDROCHLOROTHIAZIDE, LISINOPRIL DIHYDRATE) [Concomitant]
  5. SAW PALMETTO (SERENOA REPENS) [Concomitant]
  6. NORVASC (AMLODIPINE BESILATE) [Concomitant]
  7. VIAGRA (SILDENAFIL CITRATE) [Concomitant]

REACTIONS (7)
  - Glomerular filtration rate decreased [None]
  - Renal failure chronic [None]
  - Rash [None]
  - Renal failure [None]
  - Nephrogenic anaemia [None]
  - Large intestine polyp [None]
  - Renal cyst [None]
